FAERS Safety Report 9452785 (Version 4)
Quarter: 2014Q1

REPORT INFORMATION
  Report Type: Report from Study
  Country: BR (occurrence: BR)
  Receive Date: 20130812
  Receipt Date: 20140210
  Transmission Date: 20141002
  Serious: Yes (Life-Threatening, Hospitalization, Disabling, Other)
  Sender: FDA-Public Use
  Company Number: PHHY2013BR085767

PATIENT
  Sex: Male
  Weight: 62 kg

DRUGS (3)
  1. EXELON [Suspect]
     Indication: DEMENTIA ALZHEIMER^S TYPE
     Dosage: 2 DF, DAILY
     Route: 048
  2. EXELON [Suspect]
     Dosage: 2 DF, DAILY
     Route: 048
  3. SEROQUEL [Suspect]
     Indication: AGGRESSION
     Dosage: 2.5 DF, DAILY
     Route: 048

REACTIONS (15)
  - Feeling abnormal [Unknown]
  - Crying [Recovered/Resolved]
  - Convulsion [Recovered/Resolved]
  - Skin discolouration [Recovered/Resolved]
  - Spinal column injury [Recovering/Resolving]
  - Hypotension [Recovered/Resolved]
  - Abasia [Not Recovered/Not Resolved]
  - Prostate cancer [Recovered/Resolved]
  - Aphasia [Not Recovered/Not Resolved]
  - Nervous system disorder [Unknown]
  - Disease progression [Unknown]
  - Abnormal behaviour [Recovered/Resolved]
  - Irritability [Recovered/Resolved]
  - Memory impairment [Unknown]
  - Aggression [Recovered/Resolved]
